FAERS Safety Report 12515304 (Version 2)
Quarter: 2017Q3

REPORT INFORMATION
  Report Type: Spontaneous
  Country: US (occurrence: US)
  Receive Date: 20160630
  Receipt Date: 20170718
  Transmission Date: 20171127
  Serious: Yes (Hospitalization)
  Sender: FDA-Public Use
  Company Number: US-BAUSCH-BL-2016-015077

PATIENT
  Age: 86 Year
  Sex: Female

DRUGS (2)
  1. XENAZINE [Suspect]
     Active Substance: TETRABENAZINE
     Route: 048
     Dates: start: 20150101
  2. XENAZINE [Suspect]
     Active Substance: TETRABENAZINE
     Indication: DYSTONIA
     Route: 048
     Dates: start: 20140919

REACTIONS (8)
  - Cognitive disorder [Unknown]
  - Off label use [Not Recovered/Not Resolved]
  - Syncope [Unknown]
  - Pneumonia aspiration [Unknown]
  - Dehydration [Unknown]
  - Parkinsonism [Unknown]
  - Fall [Unknown]
  - Drug administration error [Unknown]

NARRATIVE: CASE EVENT DATE: 20140919
